FAERS Safety Report 10416552 (Version 3)
Quarter: 2015Q2

REPORT INFORMATION
  Report Type: Spontaneous
  Country: DE (occurrence: DE)
  Receive Date: 20140828
  Receipt Date: 20150527
  Transmission Date: 20150821
  Serious: Yes (Disabling)
  Sender: FDA-Public Use
  Company Number: DE-GLAXOSMITHKLINE-D0085122A

PATIENT
  Sex: Male

DRUGS (7)
  1. MALIASIN [Concomitant]
     Active Substance: BARBEXACLONE
     Indication: EPILEPSY
     Route: 048
  2. APYDAN [Concomitant]
     Active Substance: OXCARBAZEPINE
     Indication: EPILEPSY
     Route: 048
  3. TEGRETAL [Concomitant]
     Active Substance: CARBAMAZEPINE
     Indication: EPILEPSY
     Route: 048
  4. TROBALT [Suspect]
     Active Substance: EZOGABINE
     Indication: EPILEPSY
     Route: 048
     Dates: start: 201311
  5. KEPPRA [Concomitant]
     Active Substance: LEVETIRACETAM
     Indication: EPILEPSY
     Route: 048
  6. ZONEGRAN [Concomitant]
     Active Substance: ZONISAMIDE
     Indication: EPILEPSY
     Route: 048
  7. ZENTROPIL [Concomitant]
     Active Substance: PHENYTOIN
     Indication: EPILEPSY
     Route: 048

REACTIONS (1)
  - Maculopathy [Not Recovered/Not Resolved]
